FAERS Safety Report 7482594-5 (Version None)
Quarter: 2011Q2

REPORT INFORMATION
  Report Type: 
  Country: None (occurrence: None)
  Receive Date: 20110516
  Receipt Date: 20110504
  Transmission Date: 20111010
  Serious: Yes (Hospitalization)
  Sender: FDA-Public Use
  Company Number: KR-UCBSA-032205

PATIENT
  Sex: Female
  Weight: 67 kg

DRUGS (7)
  1. METHYLPEDNISOLONE SODIUM SUCCINATE [Concomitant]
     Indication: RHEUMATOID ARTHRITIS
     Route: 048
     Dates: start: 20100108
  2. CERTOLIZUMAB PEGOL [Suspect]
     Indication: RHEUMATOID ARTHRITIS
     Dosage: RA0025
     Route: 058
  3. CERTOLIZUMAB PEGOL [Suspect]
     Route: 058
     Dates: start: 20110207
  4. METHOTREXATE [Concomitant]
     Indication: RHEUMATOID ARTHRITIS
     Route: 048
     Dates: start: 20100428
  5. ISONICOTINIC ACID HIDRAZIDE [Concomitant]
     Indication: LATENT TUBERCULOSIS
     Route: 048
     Dates: start: 20100721
  6. MELOXICAM [Concomitant]
     Indication: RHEUMATOID ARTHRITIS
     Route: 048
     Dates: start: 20091226
  7. REBAMIPIDE [Concomitant]
     Indication: GASTROINTESTINAL DISORDER
     Route: 048
     Dates: start: 20100823

REACTIONS (1)
  - DUODENAL ULCER HAEMORRHAGE [None]
